FAERS Safety Report 4943017-0 (Version None)
Quarter: 2006Q1

REPORT INFORMATION
  Report Type: 
  Country: None (occurrence: None)
  Receive Date: 20060314
  Receipt Date: 20040525
  Transmission Date: 20060701
  Serious: Yes (Death, Life-Threatening)
  Sender: FDA-Public Use
  Company Number: FI-SANOFI-SYNTHELABO-D01200401

PATIENT
  Age: 73 Year
  Sex: Male
  Weight: 80 kg

DRUGS (6)
  1. FONDAPARINUX [Suspect]
     Indication: ACUTE CORONARY SYNDROME
     Dosage: 2.5MG PER DAY
     Route: 058
     Dates: start: 20040517, end: 20040519
  2. ASPIRIN [Concomitant]
     Route: 065
  3. BISOPROLOL [Concomitant]
     Dosage: 5MG PER DAY
     Route: 065
  4. CLOPIDOGREL [Concomitant]
     Route: 048
     Dates: start: 20040518
  5. OMEPRAZOLE [Concomitant]
     Route: 065
  6. SIMVASTATIN [Concomitant]
     Route: 065

REACTIONS (2)
  - CIRCULATORY COLLAPSE [None]
  - CORONARY ARTERY THROMBOSIS [None]
